FAERS Safety Report 22518147 (Version 2)
Quarter: 2023Q2

REPORT INFORMATION
  Report Type: Report from Study
  Country: US (occurrence: US)
  Receive Date: 20230605
  Receipt Date: 20230607
  Transmission Date: 20230722
  Serious: No
  Sender: FDA-Public Use
  Company Number: US-SANOFI-01635766

PATIENT
  Age: 60 Year
  Sex: Male

DRUGS (1)
  1. DUPIXENT [Suspect]
     Active Substance: DUPILUMAB
     Indication: Eczema
     Dosage: 300 MG, Q15D
     Dates: end: 20230418

REACTIONS (6)
  - Oedema peripheral [Unknown]
  - Joint swelling [Unknown]
  - Eyelid margin crusting [Unknown]
  - Eye swelling [Unknown]
  - Oedema [Unknown]
  - Dry eye [Unknown]
